FAERS Safety Report 9144023 (Version 2)
Quarter: 2013Q1

REPORT INFORMATION
  Report Type: Spontaneous
  Country: US (occurrence: US)
  Receive Date: 20130306
  Receipt Date: 20130326
  Transmission Date: 20140127
  Serious: Yes (Death, Hospitalization)
  Sender: FDA-Public Use
  Company Number: US-GLAXOSMITHKLINE-A0774052A

PATIENT
  Age: 66 Year
  Sex: Male
  Weight: 100 kg

DRUGS (4)
  1. AVANDIA [Suspect]
     Indication: TYPE 2 DIABETES MELLITUS
     Dosage: 8MG SEE DOSAGE TEXT
     Route: 048
     Dates: start: 20000101
  2. METFORMIN [Concomitant]
  3. GLYBURIDE [Concomitant]
  4. SIMVASTATIN [Concomitant]

REACTIONS (4)
  - Failure to thrive [Fatal]
  - Myocardial infarction [Unknown]
  - Cardiac failure congestive [Unknown]
  - Coronary artery disease [Unknown]
